FAERS Safety Report 13231153 (Version 1)
Quarter: 2017Q1

REPORT INFORMATION
  Report Type: Spontaneous
  Country: US (occurrence: US)
  Receive Date: 20170214
  Receipt Date: 20170214
  Transmission Date: 20170428
  Serious: Yes (Hospitalization, Other)
  Sender: FDA-Public Use
  Company Number: US-MEDA-2017010115

PATIENT
  Sex: Female
  Weight: 64 kg

DRUGS (2)
  1. FELBAMATE. [Suspect]
     Active Substance: FELBAMATE
     Indication: GENERALISED TONIC-CLONIC SEIZURE
     Route: 048
     Dates: start: 201604
  2. FELBAMATE. [Suspect]
     Active Substance: FELBAMATE
     Indication: GENERALISED TONIC-CLONIC SEIZURE
     Route: 048
     Dates: start: 2002

REACTIONS (10)
  - Diplopia [Unknown]
  - Macrocytosis [Not Recovered/Not Resolved]
  - Bronchitis [Recovering/Resolving]
  - Drug withdrawal convulsions [Recovered/Resolved]
  - Toxicity to various agents [Unknown]
  - Gallbladder polyp [Not Recovered/Not Resolved]
  - Ear infection [Recovering/Resolving]
  - Blood alkaline phosphatase increased [Recovering/Resolving]
  - Off label use [Unknown]
  - Gait disturbance [Unknown]

NARRATIVE: CASE EVENT DATE: 2002
